FAERS Safety Report 4554570-3 (Version None)
Quarter: 2005Q1

REPORT INFORMATION
  Report Type: 
  Country: None (occurrence: None)
  Receive Date: 20050118
  Receipt Date: 20041202
  Transmission Date: 20050727
  Serious: Yes (Death, Hospitalization)
  Sender: FDA-Public Use
  Company Number: LS-BRISTOL-MYERS SQUIBB COMPANY-12781571

PATIENT
  Age: 42 Year
  Sex: Female

DRUGS (3)
  1. EFAVIRENZ [Suspect]
     Dosage: 3RD COURSE
     Dates: start: 20040916, end: 20041121
  2. STAVUDINE [Suspect]
     Dosage: 3RD COURSE
     Dates: start: 20040916, end: 20041121
  3. LAMIVUDINE [Suspect]
     Dosage: 3RD COURSE
     Dates: start: 20040916, end: 20041121

REACTIONS (4)
  - DEATH [None]
  - DEHYDRATION [None]
  - DIARRHOEA [None]
  - GASTROENTERITIS [None]
